FAERS Safety Report 6804101-X (Version None)
Quarter: 2010Q2

REPORT INFORMATION
  Report Type: 
  Country: None (occurrence: None)
  Receive Date: 20100628
  Receipt Date: 20070409
  Transmission Date: 20101027
  Serious: No
  Sender: FDA-Public Use
  Company Number: US-PFIZER INC-2006086710

PATIENT
  Sex: Female

DRUGS (5)
  1. XALATAN [Suspect]
     Indication: INTRAOCULAR PRESSURE INCREASED
     Dosage: EACH EYE
     Route: 031
  2. XALATAN [Suspect]
     Indication: GLAUCOMA
  3. BENADRYL [Suspect]
     Indication: INSOMNIA
  4. MIACALCIN [Concomitant]
     Indication: BONE DISORDER
  5. LUMIGAN [Concomitant]

REACTIONS (4)
  - DRY EYE [None]
  - INCORRECT STORAGE OF DRUG [None]
  - INTRAOCULAR PRESSURE INCREASED [None]
  - MEDICATION ERROR [None]
